FAERS Safety Report 7942635-5 (Version None)
Quarter: 2011Q4

REPORT INFORMATION
  Report Type: 
  Country: None (occurrence: None)
  Receive Date: 20111128
  Receipt Date: 20111114
  Transmission Date: 20120403
  Serious: Yes (Other)
  Sender: FDA-Public Use
  Company Number: ES-EISAI INC-E3810-05092-SPO-ES

PATIENT
  Age: 53 Year
  Sex: Female

DRUGS (1)
  1. RABEPRAZOLE SODIUM [Suspect]
     Indication: DUODENITIS
     Dosage: UNKNOWN
     Route: 048
     Dates: start: 20110621, end: 20110623

REACTIONS (2)
  - BREAST TENDERNESS [None]
  - VERTIGO [None]
